FAERS Safety Report 9579948 (Version 3)
Quarter: 2013Q4

REPORT INFORMATION
  Report Type: Spontaneous
  Country: TR (occurrence: TR)
  Receive Date: 20131002
  Receipt Date: 20131217
  Transmission Date: 20140711
  Serious: Yes (Death, Hospitalization)
  Sender: FDA-Public Use
  Company Number: TR-ALEXION PHARMACEUTICALS INC.-A201302398

PATIENT
  Age: 3 Year
  Sex: Female

DRUGS (5)
  1. SOLIRIS 300MG [Suspect]
     Indication: HAEMOLYTIC URAEMIC SYNDROME
     Dosage: 300 MG, QW
     Route: 042
     Dates: start: 20120530, end: 20130619
  2. SOLIRIS 300MG [Suspect]
     Indication: OFF LABEL USE
     Dosage: 300 MG, Q2W
     Route: 042
     Dates: start: 20130627, end: 20130911
  3. AMLODIPIN [Concomitant]
     Indication: HYPERTENSION
     Dosage: UNK
  4. DELIX [Concomitant]
     Indication: HYPERTENSION
     Dosage: UNK
  5. SEVELAMER [Concomitant]
     Indication: HYPERPHOSPHATAEMIA
     Dosage: UNK

REACTIONS (3)
  - Haemorrhage intracranial [Fatal]
  - Hyperkalaemia [Fatal]
  - Off label use [Unknown]
